FAERS Safety Report 5069849-9 (Version None)
Quarter: 2006Q3

REPORT INFORMATION
  Report Type: 
  Country: None (occurrence: None)
  Receive Date: 20060731
  Receipt Date: 20060718
  Transmission Date: 20061208
  Serious: Yes (Other)
  Sender: FDA-Public Use
  Company Number: 2006089974

PATIENT
  Sex: Female

DRUGS (6)
  1. MINIPRESS [Suspect]
     Indication: HYPERTENSION
     Dosage: 2 MG, ORAL
     Route: 048
  2. VERACAPS SR (VERAPAMIL HYDROCHLORIDE) [Concomitant]
  3. AVAPRO [Concomitant]
  4. LIPITOR [Concomitant]
  5. NAPROSYN [Concomitant]
  6. PAROXETINE HCL [Concomitant]

REACTIONS (5)
  - ASTHMA [None]
  - BRONCHIAL DISORDER [None]
  - DYSPNOEA [None]
  - INFECTION [None]
  - PRODUCTIVE COUGH [None]
